FAERS Safety Report 5796674-3 (Version None)
Quarter: 2008Q2

REPORT INFORMATION
  Report Type: 
  Country: None (occurrence: None)
  Receive Date: 20080627
  Receipt Date: 20080617
  Transmission Date: 20081010
  Serious: No
  Sender: FDA-Public Use
  Company Number: 235540J08USA

PATIENT
  Age: 61 Year
  Sex: Female

DRUGS (4)
  1. REBIF [Suspect]
     Indication: MULTIPLE SCLEROSIS
     Dosage: 44 MCG, 3 IN 1 WEEKS, SUBCUTANEOUS
     Route: 058
     Dates: start: 20080207
  2. CATAFLAM [Suspect]
     Indication: MUSCULOSKELETAL PAIN
     Dates: start: 20080101, end: 20080501
  3. INSULIN (INSULIN /00030501/) [Concomitant]
  4. DIABETIC MEDICATION (DRUG USE IN DIABETES) [Concomitant]

REACTIONS (3)
  - ABDOMINAL PAIN UPPER [None]
  - DYSPEPSIA [None]
  - VOMITING [None]
